FAERS Safety Report 9598756 (Version 1)
Quarter: 2013Q4

REPORT INFORMATION
  Report Type: Spontaneous
  Country: US (occurrence: US)
  Receive Date: 20131004
  Receipt Date: 20131004
  Transmission Date: 20140711
  Serious: No
  Sender: FDA-Public Use
  Company Number: US-AMGEN-USASP2013025592

PATIENT
  Age: 77 Year
  Sex: Male
  Weight: 92.97 kg

DRUGS (17)
  1. ENBREL [Suspect]
     Indication: PRODUCT USED FOR UNKNOWN INDICATION
     Dosage: 25 MG, 2 TIMES/WK
     Route: 058
  2. FUROSEMIDE [Concomitant]
     Dosage: 20 MG, UNK
  3. GEMFIBROZIL [Concomitant]
     Dosage: 600 MG, UNK
  4. VERAPAMIL [Concomitant]
     Dosage: 120 MG, UNK
  5. PRAVASTATIN [Concomitant]
     Dosage: 10 MG, UNK
  6. ACTOS [Concomitant]
     Dosage: 45 MG, UNK
  7. AVAPRO [Concomitant]
     Dosage: 300 MG, UNK
  8. ATENOLOL [Concomitant]
     Dosage: 50 MG, UNK
  9. HYDROCHLOROTH [Concomitant]
     Dosage: 50 MG, UNK
  10. DOXAZOSIN [Concomitant]
     Dosage: 4 MG, UNK
  11. GLYBURIDE [Concomitant]
     Dosage: 1.25 MG, UNK
  12. LEVOTHYROXIN [Concomitant]
     Dosage: 50 MUG, UNK
  13. TRAMADOL HCL [Concomitant]
     Dosage: 50 MG, UNK
  14. MULTIVITAMINS, PLAIN [Concomitant]
     Dosage: UNK
  15. CALCIUM +D                         /00944201/ [Concomitant]
     Dosage: 1000 UNK, UNK
  16. FENTANYL [Concomitant]
     Dosage: 25 MUG, UNK
  17. HYDROCODONE/HOMATROP [Concomitant]
     Dosage: UNK

REACTIONS (1)
  - Sinusitis [Unknown]
